FAERS Safety Report 8812746 (Version 1)
Quarter: 2012Q4

REPORT INFORMATION
  Report Type: Report from Study
  Country: US (occurrence: US)
  Receive Date: 20120927
  Receipt Date: 20120927
  Transmission Date: 20130627
  Serious: Yes (Hospitalization)
  Sender: FDA-Public Use
  Company Number: US-CELGENEUS-163-CCAZA-11110637

PATIENT
  Age: 72 Year
  Sex: Male
  Weight: 100.7 kg

DRUGS (2)
  1. AZACITIDINE INJECTABLE [Suspect]
     Indication: ACUTE MYELOID LEUKEMIA
     Dosage: 75 milligram/sq. meter
     Route: 041
     Dates: start: 20110812, end: 20110818
  2. AZACITIDINE INJECTABLE [Suspect]
     Dosage: 75 milligram/sq. meter
     Route: 058
     Dates: start: 20111011, end: 20111017

REACTIONS (1)
  - Back pain [Unknown]
